FAERS Safety Report 8607453-3 (Version None)
Quarter: 2012Q3

REPORT INFORMATION
  Report Type: 
  Country: None (occurrence: None)
  Receive Date: 20120809
  Receipt Date: 20120809
  Transmission Date: 20120928
  Serious: Yes (Hospitalization)
  Sender: FDA-Public Use
  Company Number: None

PATIENT
  Age: 61 Year
  Sex: Male

DRUGS (1)
  1. OXYCODONE HCL [Suspect]
     Dosage: 5 MG QID PO
     Route: 048
     Dates: start: 20120318, end: 20120422

REACTIONS (2)
  - RESPIRATORY DEPRESSION [None]
  - SEDATION [None]
